FAERS Safety Report 12811206 (Version 1)
Quarter: 2016Q4

REPORT INFORMATION
  Report Type: Spontaneous
  Country: US (occurrence: US)
  Receive Date: 20161005
  Receipt Date: 20161005
  Transmission Date: 20170207
  Serious: Yes (Disabling)
  Sender: FDA-Public Use
  Company Number: None

PATIENT
  Age: 63 Year
  Sex: Male
  Weight: 108.86 kg

DRUGS (3)
  1. HYOSCYAMINE VIRTUS PHARMACE [Suspect]
     Active Substance: HYOSCYAMINE
     Indication: ABDOMINAL PAIN UPPER
     Dosage: 1-PILL ONCE DAILY MOUTH
     Route: 048
     Dates: start: 20160628, end: 20160717
  2. LISINOPRIL. [Concomitant]
     Active Substance: LISINOPRIL
  3. HYOSCYOPANIOLE [Concomitant]

REACTIONS (7)
  - Nausea [None]
  - Disorientation [None]
  - Flushing [None]
  - Dry mouth [None]
  - Dizziness [None]
  - Hyperhidrosis [None]
  - Dysarthria [None]

NARRATIVE: CASE EVENT DATE: 20160124
